FAERS Safety Report 5901210-4 (Version None)
Quarter: 2008Q3

REPORT INFORMATION
  Report Type: 
  Country: None (occurrence: None)
  Receive Date: 20080929
  Receipt Date: 20080606
  Transmission Date: 20090109
  Serious: No
  Sender: FDA-Public Use
  Company Number: US-BRISTOL-MYERS SQUIBB COMPANY-14218671

PATIENT
  Age: 56 Year
  Sex: Female

DRUGS (9)
  1. ORENCIA [Suspect]
     Dates: start: 20080307, end: 20080416
  2. METHOTREXATE [Concomitant]
  3. FOLIC ACID [Concomitant]
  4. EFFEXOR [Concomitant]
  5. DARVON [Concomitant]
  6. VICODIN [Concomitant]
     Dosage: 5MG EVERY 6 HOURS WHEN NECESSARY
  7. XANAX [Concomitant]
  8. FLOMAX [Concomitant]
     Dosage: TABLET FORM
  9. LOTREL [Concomitant]

REACTIONS (1)
  - FUNGAL INFECTION [None]
